FAERS Safety Report 20157010 (Version 1)
Quarter: 2021Q4

REPORT INFORMATION
  Report Type: Spontaneous
  Country: US (occurrence: None)
  Receive Date: 20211207
  Receipt Date: 20211207
  Transmission Date: 20220304
  Serious: Yes (Hospitalization)
  Sender: FDA-Public Use
  Company Number: None

PATIENT
  Age: 50 Year
  Sex: Male
  Weight: 122.2 kg

DRUGS (1)
  1. REGEN-COV [Suspect]
     Active Substance: CASIRIVIMAB\IMDEVIMAB
     Indication: COVID-19
     Dosage: FREQUENCY : ONCE;?
     Route: 042
     Dates: start: 20211025

REACTIONS (7)
  - Blood blister [None]
  - Stomatitis [None]
  - Thrombocytopenia [None]
  - Platelet transfusion [None]
  - Adverse drug reaction [None]
  - Drug specific antibody [None]
  - Anti-platelet antibody [None]

NARRATIVE: CASE EVENT DATE: 20211105
